FAERS Safety Report 15493658 (Version 2)
Quarter: 2019Q1

REPORT INFORMATION
  Report Type: Report from Study
  Country: US (occurrence: US)
  Receive Date: 20181012
  Receipt Date: 20190118
  Transmission Date: 20190417
  Serious: Yes (Hospitalization, Other)
  Sender: FDA-Public Use
  Company Number: US-RETROPHIN, INC.-2018RTN00048

PATIENT
  Age: 1 Year
  Sex: Female

DRUGS (2)
  1. CHOLIC ACID [Suspect]
     Active Substance: CHOLIC ACID
     Indication: CEREBROHEPATORENAL SYNDROME
     Dosage: 100 MG, 1X/DAY
     Route: 065
     Dates: start: 20171210, end: 20180926
  2. CHOLIC ACID [Suspect]
     Active Substance: CHOLIC ACID
     Dosage: 100 MG, 1X/DAY
     Route: 065
     Dates: start: 20180928

REACTIONS (3)
  - Pneumonia [Unknown]
  - Product dose omission [Recovered/Resolved]
  - Dependence on respirator [Not Recovered/Not Resolved]

NARRATIVE: CASE EVENT DATE: 20180926
